FAERS Safety Report 10861268 (Version 1)
Quarter: 2015Q1

REPORT INFORMATION
  Report Type: Spontaneous
  Country: US (occurrence: US)
  Receive Date: 20150224
  Receipt Date: 20150224
  Transmission Date: 20150721
  Serious: Yes (Death)
  Sender: FDA-Public Use
  Company Number: US-BANPHARM-20153480

PATIENT
  Age: 67 Year
  Sex: Male

DRUGS (5)
  1. LOVASTATIN. [Suspect]
     Active Substance: LOVASTATIN
  2. LAMOTRIGINE. [Suspect]
     Active Substance: LAMOTRIGINE
  3. ZONISAMIDE UNKNOWN PRODUCT [Suspect]
     Active Substance: ZONISAMIDE
  4. LORAZEPAM. [Suspect]
     Active Substance: LORAZEPAM
  5. ESCITALOPRAM [Suspect]
     Active Substance: ESCITALOPRAM OXALATE

REACTIONS (1)
  - Completed suicide [Fatal]
